FAERS Safety Report 12519690 (Version 1)
Quarter: 2016Q2

REPORT INFORMATION
  Report Type: Spontaneous
  Country: US (occurrence: US)
  Receive Date: 20160630
  Receipt Date: 20160630
  Transmission Date: 20160815
  Serious: No
  Sender: FDA-Public Use
  Company Number: US-RECKITT BENCKISER HEALTHCARE INT LIMITED-RB-85248-2016

PATIENT
  Age: 66 Year
  Sex: Female

DRUGS (2)
  1. MUCINEX [Suspect]
     Active Substance: GUAIFENESIN
     Indication: HYPERSENSITIVITY
  2. MUCINEX [Suspect]
     Active Substance: GUAIFENESIN
     Indication: SEASONAL ALLERGY
     Dosage: 1 DF, BID (EVERY 12 HOURS)
     Route: 065
     Dates: start: 20160412

REACTIONS (3)
  - Drug ineffective for unapproved indication [Not Recovered/Not Resolved]
  - Product use issue [Not Recovered/Not Resolved]
  - Dysgeusia [Not Recovered/Not Resolved]

NARRATIVE: CASE EVENT DATE: 201604
